FAERS Safety Report 25925365 (Version 1)
Quarter: 2025Q4

REPORT INFORMATION
  Report Type: Report from Study
  Country: None (occurrence: EU)
  Receive Date: 20251015
  Receipt Date: 20251015
  Transmission Date: 20260117
  Serious: Yes (Hospitalization)
  Sender: ALNYLAM PHARMACEUTICALS
  Company Number: EU-ALNYLAM PHARMACEUTICALS, INC.-ALN-2025-005233

PATIENT
  Age: 40 Year

DRUGS (1)
  1. AMVUTTRA [Suspect]
     Active Substance: VUTRISIRAN
     Indication: Product used for unknown indication
     Dosage: 25 MILLIGRAM, Q3M

REACTIONS (5)
  - Hospitalisation [Recovering/Resolving]
  - Mental disorder [Unknown]
  - Insomnia [Unknown]
  - Neurogenic bowel [Unknown]
  - Loss of bladder sensation [Unknown]
